FAERS Safety Report 4657288-1 (Version None)
Quarter: 2005Q2

REPORT INFORMATION
  Report Type: 
  Country: None (occurrence: None)
  Receive Date: 20050506
  Receipt Date: 20050425
  Transmission Date: 20051028
  Serious: Yes (Hospitalization)
  Sender: FDA-Public Use
  Company Number: 231618K05USA

PATIENT
  Age: 33 Year
  Sex: Female
  Weight: 65.7716 kg

DRUGS (9)
  1. REBIF [Suspect]
     Indication: MULTIPLE SCLEROSIS
     Dosage: 44 MCG, 3 IN 1 WEEKS, SUBCUTANEOUS
     Route: 058
     Dates: start: 20041112
  2. SYNTHROIS (LEVOTHYROXINE SODIUM) [Concomitant]
  3. NEURONTIN [Concomitant]
  4. INDERAL [Concomitant]
  5. ELAVIL [Concomitant]
  6. PROMETHAZINE [Concomitant]
  7. XANAX [Concomitant]
  8. ZANTAC [Concomitant]
  9. RELPAX (ELETRIPTAN HYDROBROMIDE) [Concomitant]

REACTIONS (9)
  - ABDOMINAL PAIN [None]
  - CHILLS [None]
  - INFLUENZA LIKE ILLNESS [None]
  - INJECTION SITE IRRITATION [None]
  - INJECTION SITE REACTION [None]
  - INJECTION SITE SWELLING [None]
  - LIVER FUNCTION TEST ABNORMAL [None]
  - PANCREATITIS [None]
  - PARAESTHESIA [None]
